FAERS Safety Report 25743362 (Version 1)
Quarter: 2025Q3

REPORT INFORMATION
  Report Type: Spontaneous
  Country: US (occurrence: US)
  Receive Date: 20250830
  Receipt Date: 20250830
  Transmission Date: 20251021
  Serious: Yes (Hospitalization, Other)
  Sender: UCB
  Company Number: US-UCBSA-2025052610

PATIENT
  Sex: Female
  Weight: 67.12 kg

DRUGS (1)
  1. CIMZIA [Suspect]
     Active Substance: CERTOLIZUMAB PEGOL
     Indication: Ankylosing spondylitis
     Dosage: 400 MILLIGRAM, EV 4 WEEKS
     Route: 058
     Dates: start: 2025

REACTIONS (3)
  - Kidney infection [Recovering/Resolving]
  - Ankylosing spondylitis [Not Recovered/Not Resolved]
  - Hospitalisation [Recovering/Resolving]

NARRATIVE: CASE EVENT DATE: 20250101
